FAERS Safety Report 6225035-8 (Version None)
Quarter: 2009Q2

REPORT INFORMATION
  Report Type: 
  Country: None (occurrence: None)
  Receive Date: 20090612
  Receipt Date: 20090403
  Transmission Date: 20091009
  Serious: No
  Sender: FDA-Public Use
  Company Number: US-ABBOTT-09P-163-0566663-00

PATIENT
  Sex: Female
  Weight: 128.94 kg

DRUGS (3)
  1. HUMIRA [Suspect]
     Indication: RHEUMATOID ARTHRITIS
     Route: 058
     Dates: start: 20081107
  2. HUMIRA [Suspect]
     Indication: PSORIASIS
  3. UNNAMED BREATHING MEDICATION [Concomitant]
     Indication: ASTHMA

REACTIONS (7)
  - BURNING SENSATION [None]
  - CONTUSION [None]
  - HYPOAESTHESIA [None]
  - LYMPHADENOPATHY [None]
  - PARAESTHESIA [None]
  - VASCULAR RUPTURE [None]
  - VEIN PAIN [None]
